FAERS Safety Report 8126036-5 (Version None)
Quarter: 2012Q1

REPORT INFORMATION
  Report Type: 
  Country: None (occurrence: None)
  Receive Date: 20120209
  Receipt Date: 20120127
  Transmission Date: 20120608
  Serious: Yes (Other)
  Sender: FDA-Public Use
  Company Number: GR-ROCHE-1034917

PATIENT
  Age: 76 Year
  Sex: Male

DRUGS (4)
  1. DOCETAXEL [Suspect]
     Indication: GASTRIC CANCER
     Dosage: ON DAY 1
  2. CARBOPLATIN [Suspect]
     Indication: GASTRIC CANCER
     Dosage: 5 AUC ON DAY 1
  3. FILGRASTIM [Concomitant]
     Indication: NEUTROPENIA
  4. CAPECITABINE [Suspect]
     Indication: GASTRIC CANCER
     Dosage: ON DAY 1 TO 5

REACTIONS (3)
  - NEUTROPENIA [None]
  - LEPROSY [None]
  - GANGRENE [None]
